FAERS Safety Report 17598036 (Version 1)
Quarter: 2020Q1

REPORT INFORMATION
  Report Type: Spontaneous
  Country: US (occurrence: US)
  Receive Date: 20200330
  Receipt Date: 20200330
  Transmission Date: 20200409
  Serious: No
  Sender: FDA-Public Use
  Company Number: US-PFIZER INC-2020123998

PATIENT
  Age: 29 Year
  Sex: Male
  Weight: 86.18 kg

DRUGS (1)
  1. TESTOSTERONE CIPIONATE [Suspect]
     Active Substance: TESTOSTERONE
     Dosage: UNK
     Route: 030
     Dates: start: 2014

REACTIONS (3)
  - Feeling abnormal [Unknown]
  - Chest pain [Unknown]
  - Cough [Unknown]
